FAERS Safety Report 15419100 (Version 1)
Quarter: 2018Q3

REPORT INFORMATION
  Report Type: Report from Study
  Country: None (occurrence: TR)
  Receive Date: 20180924
  Receipt Date: 20180924
  Transmission Date: 20181010
  Serious: Yes (Hospitalization)
  Sender: FDA-Public Use
  Company Number: TR-ABBVIE-18S-161-2494807-00

PATIENT
  Age: 62 Year
  Sex: Male

DRUGS (6)
  1. REDEPRA [Concomitant]
     Indication: DEPRESSION
     Route: 048
  2. VIREAD [Concomitant]
     Active Substance: TENOFOVIR DISOPROXIL FUMARATE
     Indication: HEPATITIS B
     Route: 048
     Dates: start: 2000
  3. DUODOPA [Suspect]
     Active Substance: CARBIDOPA\LEVODOPA
     Indication: PARKINSON^S DISEASE
     Dosage: MD: 4.80 ML, CD: 4.80 ML, ED: 1.00 ML
     Route: 050
     Dates: start: 20151116
  4. VIRENTE [Concomitant]
     Indication: HEPATITIS B
     Route: 048
     Dates: start: 2000
  5. RIVOTRIL [Concomitant]
     Active Substance: CLONAZEPAM
     Indication: HALLUCINATION
     Dosage: 1X5 DROP
     Route: 048
  6. FLUDEX [Concomitant]
     Indication: HYPERTENSION
     Route: 048
     Dates: start: 2015

REACTIONS (3)
  - Constipation [Unknown]
  - Hypophagia [Unknown]
  - General physical health deterioration [Unknown]

NARRATIVE: CASE EVENT DATE: 20180914
